FAERS Safety Report 16970243 (Version 1)
Quarter: 2019Q4

REPORT INFORMATION
  Report Type: Report from Study
  Country: BR (occurrence: BR)
  Receive Date: 20191029
  Receipt Date: 20191029
  Transmission Date: 20200122
  Serious: Yes (Other)
  Sender: FDA-Public Use
  Company Number: PHHY2017BR145411

PATIENT
  Age: 34 Year
  Sex: Female
  Weight: 82 kg

DRUGS (2)
  1. PREDNISONE. [Concomitant]
     Active Substance: PREDNISONE
     Indication: ANKYLOSING SPONDYLITIS
     Dosage: 1 DF, QD (FROM 3 YEARS)
     Route: 048
  2. COSENTYX [Suspect]
     Active Substance: SECUKINUMAB
     Indication: ANKYLOSING SPONDYLITIS
     Dosage: 150 MG, QMO
     Route: 058
     Dates: start: 20161109

REACTIONS (14)
  - Pharyngitis [Unknown]
  - Tooth fracture [Recovered/Resolved]
  - Sneezing [Recovered/Resolved]
  - Weight increased [Unknown]
  - Body height decreased [Unknown]
  - Malaise [Unknown]
  - Cough [Not Recovered/Not Resolved]
  - Nasal congestion [Not Recovered/Not Resolved]
  - Influenza [Unknown]
  - Diarrhoea [Unknown]
  - Treatment failure [Unknown]
  - Respiratory tract infection [Unknown]
  - Dysphonia [Not Recovered/Not Resolved]
  - Inappropriate schedule of product administration [Unknown]

NARRATIVE: CASE EVENT DATE: 20180607
